FAERS Safety Report 25074315 (Version 1)
Quarter: 2025Q1

REPORT INFORMATION
  Report Type: Spontaneous
  Country: FR (occurrence: FR)
  Receive Date: 20250313
  Receipt Date: 20250313
  Transmission Date: 20250409
  Serious: Yes (Other)
  Sender: PFIZER
  Company Number: None

PATIENT
  Age: 2 Year
  Sex: Female
  Weight: 14 kg

DRUGS (1)
  1. ZITHROMAX [Suspect]
     Active Substance: AZITHROMYCIN DIHYDRATE
     Indication: Laryngitis
     Route: 048
     Dates: start: 20241020, end: 20241021

REACTIONS (4)
  - Diarrhoea [Recovered/Resolved]
  - Anaemia [Unknown]
  - Incorrect dose administered [Unknown]
  - Overdose [Unknown]

NARRATIVE: CASE EVENT DATE: 20241020
